FAERS Safety Report 21571331 (Version 4)
Quarter: 2022Q4

REPORT INFORMATION
  Report Type: Report from Study
  Country: BR (occurrence: BR)
  Receive Date: 20221109
  Receipt Date: 20221124
  Transmission Date: 20230112
  Serious: Yes (Other)
  Sender: FDA-Public Use
  Company Number: BR-ABBVIE-4192638

PATIENT
  Age: 60 Year
  Sex: Female
  Weight: 82 kg

DRUGS (1)
  1. SKYRIZI [Suspect]
     Active Substance: RISANKIZUMAB-RZAA
     Indication: Psoriasis
     Dosage: FORM STRENGTH 75 MILLIGRAM
     Route: 058
     Dates: start: 20210616

REACTIONS (16)
  - Gait inability [Not Recovered/Not Resolved]
  - Unevaluable event [Unknown]
  - Tooth extraction [Unknown]
  - Pruritus [Not Recovered/Not Resolved]
  - Pain [Unknown]
  - Skin haemorrhage [Unknown]
  - Skin wound [Not Recovered/Not Resolved]
  - Tooth loss [Unknown]
  - Psoriasis [Unknown]
  - Skin fissures [Not Recovered/Not Resolved]
  - Anxiety [Unknown]
  - Unevaluable event [Not Recovered/Not Resolved]
  - Nail bed bleeding [Not Recovered/Not Resolved]
  - Onychoclasis [Not Recovered/Not Resolved]
  - Mouth injury [Unknown]
  - Limb injury [Unknown]

NARRATIVE: CASE EVENT DATE: 20220901
